FAERS Safety Report 7499165-7 (Version None)
Quarter: 2011Q2

REPORT INFORMATION
  Report Type: 
  Country: None (occurrence: None)
  Receive Date: 20110524
  Receipt Date: 20110512
  Transmission Date: 20111010
  Serious: Yes (Hospitalization, Other)
  Sender: FDA-Public Use
  Company Number: US-BAYER-2011-015279

PATIENT
  Age: 22 Year
  Sex: Female
  Weight: 97.506 kg

DRUGS (5)
  1. YASMIN [Suspect]
     Indication: ORAL CONTRACEPTION
     Dosage: UNK
     Dates: start: 20040801, end: 20041201
  2. YASMIN [Suspect]
     Dosage: UNK
     Dates: start: 20060201, end: 20080201
  3. ANTIBIOTICS [Concomitant]
  4. NSAID'S [Concomitant]
  5. ASTHMA/BREATHING MEDICATIONS [Concomitant]

REACTIONS (2)
  - PULMONARY EMBOLISM [None]
  - DEEP VEIN THROMBOSIS [None]
